FAERS Safety Report 22389672 (Version 1)
Quarter: 2023Q2

REPORT INFORMATION
  Report Type: Report from Study
  Country: IT (occurrence: IT)
  Receive Date: 20230531
  Receipt Date: 20230531
  Transmission Date: 20230721
  Serious: Yes (Life-Threatening, Hospitalization, Other)
  Sender: FDA-Public Use
  Company Number: None

PATIENT
  Age: 1 Year
  Sex: Female
  Weight: 11 kg

DRUGS (5)
  1. MITOXANTRONE [Suspect]
     Active Substance: MITOXANTRONE HYDROCHLORIDE
     Indication: Product used for unknown indication
     Dosage: 4.9 MILLIGRAM (4,9 MG)
     Route: 065
     Dates: start: 20220307, end: 20220308
  2. METHOTREXATE [Suspect]
     Active Substance: METHOTREXATE
     Indication: Product used for unknown indication
     Dosage: 8 MILLIGRAM (8 MG)
     Route: 037
  3. CYTARABINE [Suspect]
     Active Substance: CYTARABINE
     Indication: Product used for unknown indication
     Dosage: 8 MILLIGRAM (8 MG)
     Route: 037
     Dates: start: 20220211, end: 20220429
  4. CYTARABINE [Suspect]
     Active Substance: CYTARABINE
     Indication: Product used for unknown indication
     Dosage: 2060 MILLIGRAM
     Route: 042
     Dates: start: 20220206, end: 20220208
  5. ETOPOSIDE [Suspect]
     Active Substance: ETOPOSIDE
     Indication: Acute myeloid leukaemia
     Dosage: 60 MILLIGRAM
     Route: 065
     Dates: start: 20220208, end: 20220210

REACTIONS (4)
  - Febrile neutropenia [Recovering/Resolving]
  - Haemoglobinaemia [Recovered/Resolved]
  - Skin reaction [Recovering/Resolving]
  - Pyrexia [Recovered/Resolved]

NARRATIVE: CASE EVENT DATE: 20220206
